FAERS Safety Report 4785422-1 (Version None)
Quarter: 2005Q4

REPORT INFORMATION
  Report Type: 
  Country: None (occurrence: None)
  Receive Date: 20051003
  Receipt Date: 20050927
  Transmission Date: 20060501
  Serious: Yes (Other)
  Sender: FDA-Public Use
  Company Number: PHEH2005US10787

PATIENT
  Sex: Female

DRUGS (1)
  1. AREDIA [Suspect]
     Dosage: 90 MG, UNK

REACTIONS (4)
  - CATHETER RELATED COMPLICATION [None]
  - DRUG ADMINISTRATION ERROR [None]
  - INJECTION SITE EXTRAVASATION [None]
  - PLASTIC SURGERY [None]
